FAERS Safety Report 10486389 (Version 2)
Quarter: 2014Q4

REPORT INFORMATION
  Report Type: Spontaneous
  Country: JP (occurrence: None)
  Receive Date: 20140929
  Receipt Date: 20141027
  Transmission Date: 20150528
  Serious: Yes (Hospitalization)
  Sender: FDA-Public Use
  Company Number: 2014-002829

PATIENT
  Age: 64 Year
  Sex: Female

DRUGS (2)
  1. ACTONEL [Suspect]
     Active Substance: RISEDRONATE SODIUM
     Indication: OSTEOPOROSIS
     Route: 048
     Dates: start: 200708, end: 201109
  2. MINODRONIC ACID (MINODRONIC ACID) [Suspect]
     Active Substance: MINODRONIC ACID
     Route: 048
     Dates: start: 201109

REACTIONS (5)
  - Fall [None]
  - Atypical femur fracture [None]
  - Pain in extremity [None]
  - Gait disturbance [None]
  - Bone disorder [None]

NARRATIVE: CASE EVENT DATE: 20131001
